FAERS Safety Report 4790362-8 (Version None)
Quarter: 2005Q4

REPORT INFORMATION
  Report Type: 
  Country: None (occurrence: None)
  Receive Date: 20051005
  Receipt Date: 20050928
  Transmission Date: 20060501
  Serious: Yes (Hospitalization)
  Sender: FDA-Public Use
  Company Number: COV2-2005-00032

PATIENT
  Age: 65 Year
  Sex: Female
  Weight: 95 kg

DRUGS (4)
  1. FOSRENOL [Suspect]
     Indication: HYPERPHOSPHATAEMIA
     Dosage: 1000 MG, 3X/DAY:TID, ORAL
     Route: 048
     Dates: start: 20050413
  2. IMDUR [Concomitant]
  3. NORVASC /DEN/ (AMLODIPINE BESILATE) TABLET [Concomitant]
  4. DIOVAN HCT [Concomitant]

REACTIONS (10)
  - ABDOMINAL DISTENSION [None]
  - ABDOMINAL PAIN [None]
  - BLOOD CREATININE INCREASED [None]
  - BLOOD GLUCOSE INCREASED [None]
  - BLOOD POTASSIUM INCREASED [None]
  - BLOOD PRESSURE DIASTOLIC DECREASED [None]
  - GASTRITIS [None]
  - HAEMATOCRIT DECREASED [None]
  - HAEMOGLOBIN DECREASED [None]
  - OESOPHAGITIS [None]
